FAERS Safety Report 9172851 (Version 1)
Quarter: 2012Q4

REPORT INFORMATION
  Report Type: 
  Country: GB (occurrence: GB)
  Receive Date: 20120911
  Receipt Date: 20120911
  Transmission Date: 20130627
  Serious: Yes (Hospitalization)
  Sender: FDA-Public Use
  Company Number: GB-WATSON-2012-15714

PATIENT
  Age: 2 Year
  Sex: Male

DRUGS (7)
  1. CARBOPLATIN (WATSON LABORATORIES) [Suspect]
     Indication: NEUROBLASTOMA
     Dosage: UNK
     Route: 065
  2. VINCRISTINE [Suspect]
     Indication: NEUROBLASTOMA
     Dosage: UNK
     Route: 065
  3. CISPLATIN [Suspect]
     Indication: NEUROBLASTOMA
     Route: 065
  4. CYCLOPHOSPHAMIDE [Suspect]
     Indication: NEUROBLASTOMA
     Route: 065
  5. ETOPOSIDE [Suspect]
     Indication: NEUROBLASTOMA
     Dosage: UNK
     Route: 065
  6. BUSULPHAN [Suspect]
     Indication: NEUROBLASTOMA
     Route: 065
  7. MELPHALAN [Suspect]
     Indication: NEUROBLASTOMA
     Route: 065

REACTIONS (6)
  - Nephropathy toxic [Recovered/Resolved]
  - Renal tubular disorder [Recovered/Resolved]
  - Electrolyte imbalance [Recovered/Resolved]
  - Febrile neutropenia [Recovered/Resolved]
  - Hyponatraemia [Recovered/Resolved]
  - Hyperkalaemia [Recovered/Resolved]
